FAERS Safety Report 5623710-7 (Version None)
Quarter: 2008Q1

REPORT INFORMATION
  Report Type: 
  Country: None (occurrence: None)
  Receive Date: 20080212
  Receipt Date: 20080205
  Transmission Date: 20080703
  Serious: Yes (Other)
  Sender: FDA-Public Use
  Company Number: US-GENENTECH-251625

PATIENT
  Sex: Female
  Weight: 63.492 kg

DRUGS (10)
  1. XOLAIR [Suspect]
     Indication: ASTHMA
     Dosage: 300 MG, Q2W
     Route: 058
     Dates: start: 20060829
  2. ADVAIR DISKUS 100/50 [Concomitant]
     Indication: ASTHMA
     Dosage: UNK PUFF, BID
     Dates: start: 20060526
  3. SINGULAIR [Concomitant]
     Indication: ASTHMA
     Dosage: 10 MG, QD
     Route: 048
  4. RHINOCORT [Concomitant]
     Indication: RHINITIS ALLERGIC
     Dosage: 2 UNK, QD
  5. ZYRTEC [Concomitant]
     Indication: RHINITIS ALLERGIC
     Dosage: 10 MG, QD
     Route: 048
     Dates: start: 20070516
  6. PATADAY [Concomitant]
     Indication: CONJUNCTIVITIS ALLERGIC
     Dosage: 1 UNK, QD
  7. PREVACID [Concomitant]
     Indication: GASTROOESOPHAGEAL REFLUX DISEASE
     Dosage: 30 MG, BID
     Route: 048
  8. BUSPAR [Concomitant]
     Indication: DEPRESSION
     Route: 048
     Dates: start: 20070501
  9. BUSPAR [Concomitant]
     Indication: ANXIETY
  10. DEPO-PROVERA [Concomitant]
     Indication: CONTRACEPTION

REACTIONS (1)
  - ANAPHYLACTIC REACTION [None]
